FAERS Safety Report 22352087 (Version 2)
Quarter: 2024Q1

REPORT INFORMATION
  Report Type: Spontaneous
  Country: US (occurrence: US)
  Receive Date: 20230522
  Receipt Date: 20240105
  Transmission Date: 20240409
  Serious: Yes (Other)
  Sender: FDA-Public Use
  Company Number: US-PFIZER INC-PV202300087869

PATIENT
  Age: 63 Year
  Sex: Female

DRUGS (1)
  1. OXBRYTA [Suspect]
     Active Substance: VOXELOTOR
     Dosage: 1500 MG, DAILY [500MG 3 TABS DAILY]
     Route: 048
     Dates: start: 20211105, end: 20230808

REACTIONS (1)
  - Sickle cell anaemia with crisis [Not Recovered/Not Resolved]
